FAERS Safety Report 8308560-5 (Version None)
Quarter: 2012Q2

REPORT INFORMATION
  Report Type: 
  Country: None (occurrence: None)
  Receive Date: 20120424
  Receipt Date: 20120411
  Transmission Date: 20120825
  Serious: Yes (Life-Threatening, Hospitalization, Disabling)
  Sender: FDA-Public Use
  Company Number: CA-ELI_LILLY_AND_COMPANY-CA201204003494

PATIENT
  Age: 50 Year
  Sex: Male
  Weight: 81 kg

DRUGS (11)
  1. CYMBALTA [Suspect]
     Dosage: 60 MG, UNK
  2. ESCITALOPRAM [Concomitant]
  3. CLONAZEPAM [Concomitant]
  4. PANTOPRAZOLE SODIUM [Concomitant]
  5. KEMADRIN [Concomitant]
  6. CYMBALTA [Suspect]
     Dosage: 39 MG, UNK
  7. CLONAZEPAM [Concomitant]
  8. PANTOPRAZOLE TEVA [Concomitant]
  9. TOPIRAMATE [Concomitant]
  10. PMS-PROCYCLIDINE [Concomitant]
  11. ZYPREXA [Concomitant]

REACTIONS (5)
  - ABNORMAL BEHAVIOUR [None]
  - PARANOIA [None]
  - HEADACHE [None]
  - SUICIDAL IDEATION [None]
  - BIPOLAR DISORDER [None]
